FAERS Safety Report 9457426 (Version 1)
Quarter: 2013Q3

REPORT INFORMATION
  Report Type: Spontaneous
  Country: US (occurrence: None)
  Receive Date: 20130812
  Receipt Date: 20130812
  Transmission Date: 20140515
  Serious: Yes (Other)
  Sender: FDA-Public Use
  Company Number: None

PATIENT
  Age: 62 Year
  Sex: Male
  Weight: 83.92 kg

DRUGS (1)
  1. CAPZASIN [Suspect]
     Indication: BACK PAIN
     Dosage: N/A  THREE TIMES DAILY  APPLIED TO A SURFACE, USUALLY THE SKIN?1 APPLICATION

REACTIONS (1)
  - Burning sensation [None]
